FAERS Safety Report 9001068 (Version 2)
Quarter: 2013Q1

REPORT INFORMATION
  Report Type: Spontaneous
  Country: US (occurrence: US)
  Receive Date: 20130107
  Receipt Date: 20130208
  Transmission Date: 20140127
  Serious: Yes (Hospitalization, Other)
  Sender: FDA-Public Use
  Company Number: US-JNJFOC-20130100137

PATIENT
  Age: 23 Year
  Sex: Male

DRUGS (4)
  1. INVEGA [Suspect]
     Indication: PSYCHOTIC DISORDER
     Route: 048
     Dates: start: 2012, end: 2012
  2. INVEGA [Suspect]
     Indication: SCHIZOAFFECTIVE DISORDER
     Route: 048
     Dates: start: 2012, end: 2012
  3. NEURONTIN [Concomitant]
     Route: 065
  4. LITHIUM [Concomitant]
     Route: 065

REACTIONS (3)
  - Hospitalisation [Recovered/Resolved]
  - Treatment noncompliance [Unknown]
  - Weight increased [Unknown]
